FAERS Safety Report 6371580-4 (Version None)
Quarter: 2009Q3

REPORT INFORMATION
  Report Type: 
  Country: None (occurrence: None)
  Receive Date: 20090923
  Receipt Date: 20080507
  Transmission Date: 20100115
  Serious: No
  Sender: FDA-Public Use
  Company Number: US-ASTRAZENECA-2007UW18861

PATIENT
  Age: 45 Year
  Sex: Female

DRUGS (5)
  1. SEROQUEL [Suspect]
     Dosage: 100-400 MG
     Route: 048
     Dates: start: 20040115
  2. ZYPREXA [Concomitant]
  3. AMBIEN [Concomitant]
  4. ASPIRIN [Concomitant]
  5. MOTRIN [Concomitant]

REACTIONS (11)
  - ALCOHOL ABUSE [None]
  - ANXIETY [None]
  - BLINDNESS [None]
  - CRYING [None]
  - DEPRESSED MOOD [None]
  - DIABETES MELLITUS [None]
  - HEADACHE [None]
  - PARANOIA [None]
  - POLYSUBSTANCE DEPENDENCE [None]
  - PSYCHOTIC DISORDER [None]
  - TOOTHACHE [None]
